FAERS Safety Report 11821613 (Version 2)
Quarter: 2016Q1

REPORT INFORMATION
  Report Type: Spontaneous
  Country: None (occurrence: DK)
  Receive Date: 20151210
  Receipt Date: 20160120
  Transmission Date: 20160525
  Serious: Yes (Disabling)
  Sender: FDA-Public Use
  Company Number: DNK_MERCK KGAA_E2B_80006607

PATIENT

DRUGS (1)
  1. NOVOTHYROX [Suspect]
     Active Substance: LEVOTHYROXINE SODIUM

REACTIONS (18)
  - Abdominal pain [None]
  - Palpitations [None]
  - Constipation [None]
  - Impaired work ability [None]
  - Dyspepsia [None]
  - Hypertension [None]
  - Hunger [None]
  - Pruritus [None]
  - Feeling cold [None]
  - Dyspnoea [None]
  - Myalgia [None]
  - Neck pain [None]
  - Diarrhoea [None]
  - Peripheral coldness [None]
  - Arthralgia [None]
  - Weight increased [None]
  - Restlessness [None]
  - Insomnia [None]
